FAERS Safety Report 19474640 (Version 8)
Quarter: 2022Q1

REPORT INFORMATION
  Report Type: Spontaneous
  Country: US (occurrence: US)
  Receive Date: 20210629
  Receipt Date: 20220328
  Transmission Date: 20220423
  Serious: Yes (Other)
  Sender: FDA-Public Use
  Company Number: US-PFIZER INC-2021725873

PATIENT
  Age: 72 Year
  Sex: Female

DRUGS (2)
  1. XELJANZ [Suspect]
     Active Substance: TOFACITINIB CITRATE
     Dosage: 5 MG, 2X/DAY
  2. XELJANZ [Suspect]
     Active Substance: TOFACITINIB CITRATE
     Dosage: 5 MG

REACTIONS (8)
  - Helicobacter infection [Unknown]
  - Rheumatoid arthritis [Unknown]
  - Trismus [Unknown]
  - Thyroid pain [Unknown]
  - Fatigue [Unknown]
  - Bronchitis [Unknown]
  - Musculoskeletal discomfort [Unknown]
  - Blood cholesterol abnormal [Unknown]
